FAERS Safety Report 9876433 (Version 2)
Quarter: 2014Q1

REPORT INFORMATION
  Report Type: Other
  Country: US (occurrence: US)
  Receive Date: 20140206
  Receipt Date: 20140206
  Transmission Date: 20141002
  Serious: No
  Sender: FDA-Public Use
  Company Number: US-ACORDA-ACO_37447_2013

PATIENT
  Age: 53 Year
  Sex: Female
  Weight: 77.98 kg

DRUGS (3)
  1. AMPYRA [Suspect]
     Indication: GAIT DISTURBANCE
     Dosage: 10 MG, Q 12 HRS
     Route: 048
     Dates: start: 20130603, end: 2013
  2. AUBAGIO [Concomitant]
     Indication: PRODUCT USED FOR UNKNOWN INDICATION
     Dosage: 14 MG, UNK
     Dates: start: 201301
  3. MULTIVITAMINS [Concomitant]
     Indication: PRODUCT USED FOR UNKNOWN INDICATION
     Dosage: UNK
     Dates: start: 201208

REACTIONS (3)
  - Therapeutic response unexpected [Unknown]
  - Balance disorder [Not Recovered/Not Resolved]
  - Drug ineffective [Unknown]
